FAERS Safety Report 9341838 (Version 2)
Quarter: 2013Q3

REPORT INFORMATION
  Report Type: Spontaneous
  Country: US (occurrence: None)
  Receive Date: 20130606
  Receipt Date: 20130801
  Transmission Date: 20140515
  Serious: Yes (Death, Hospitalization, Other)
  Sender: FDA-Public Use
  Company Number: 2013-216

PATIENT
  Age: 55 Year
  Sex: Female

DRUGS (1)
  1. FAZACLO [Suspect]
     Route: 048
     Dates: start: 20120503, end: 20130415

REACTIONS (4)
  - Pneumothorax [None]
  - Pneumothorax [None]
  - Oxygen saturation decreased [None]
  - Refusal of treatment by patient [None]
